FAERS Safety Report 6206560-2 (Version None)
Quarter: 2009Q2

REPORT INFORMATION
  Report Type: 
  Country: None (occurrence: None)
  Receive Date: 20090527
  Receipt Date: 20090527
  Transmission Date: 20091009
  Serious: Yes (Hospitalization)
  Sender: FDA-Public Use
  Company Number: None

PATIENT
  Age: 54 Year
  Sex: Female
  Weight: 119.6 kg

DRUGS (12)
  1. VALPROIC ACID [Suspect]
     Indication: CONVULSION
     Dosage: 750 MG TWICE DAILY PO
     Route: 048
     Dates: start: 20090301, end: 20090514
  2. WARFARIN [Concomitant]
  3. SERTRALINE HCL [Concomitant]
  4. LEVOTHYROXINE [Concomitant]
  5. OXYBUTYNIN [Concomitant]
  6. SIMVASTATIN [Concomitant]
  7. NITROGLYCERIN -NITRO- [Concomitant]
  8. HYDROCORTISONE [Concomitant]
  9. HYDROCODONE BITARTRATE [Concomitant]
  10. METHADONE HCL [Concomitant]
  11. FERROUS SULFATE TAB [Concomitant]
  12. FOLIC ACID [Concomitant]

REACTIONS (5)
  - ASTHENIA [None]
  - DRUG TOXICITY [None]
  - DYSPNOEA [None]
  - FATIGUE [None]
  - PANCYTOPENIA [None]
